FAERS Safety Report 5846631-3 (Version None)
Quarter: 2008Q3

REPORT INFORMATION
  Report Type: 
  Country: None (occurrence: None)
  Receive Date: 20080815
  Receipt Date: 20080808
  Transmission Date: 20090109
  Serious: Yes (Other)
  Sender: FDA-Public Use
  Company Number: A0742705A

PATIENT
  Age: 67 Year
  Sex: Male
  Weight: 105 kg

DRUGS (3)
  1. AVANDIA [Suspect]
     Dosage: 4MG PER DAY
     Route: 048
     Dates: start: 20030101, end: 20071001
  2. METFORMIN HCL [Concomitant]
     Dosage: 850MG THREE TIMES PER DAY
     Dates: start: 19980101
  3. GLUCOVANCE [Concomitant]
     Dates: start: 20050101, end: 20071001

REACTIONS (1)
  - INFARCTION [None]
